FAERS Safety Report 9592451 (Version 1)
Quarter: 2013Q4

REPORT INFORMATION
  Report Type: Spontaneous
  Country: US (occurrence: US)
  Receive Date: 20131004
  Receipt Date: 20131004
  Transmission Date: 20140711
  Serious: No
  Sender: FDA-Public Use
  Company Number: US-B.I. PHARMACEUTICALS,INC./RIDGEFIELD-2013-BI-30533BP

PATIENT
  Age: 63 Year
  Sex: Female

DRUGS (4)
  1. SPIRIVA [Suspect]
     Indication: CHRONIC OBSTRUCTIVE PULMONARY DISEASE
     Dosage: 18 MCG
     Route: 055
     Dates: start: 201211, end: 201212
  2. LASIX [Concomitant]
     Indication: FLUID RETENTION
     Route: 048
  3. DULERA [Concomitant]
     Route: 055
  4. DUONEB [Concomitant]
     Route: 055

REACTIONS (1)
  - Pneumonia [Recovered/Resolved]
